FAERS Safety Report 6664696-6 (Version None)
Quarter: 2010Q2

REPORT INFORMATION
  Report Type: 
  Country: None (occurrence: None)
  Receive Date: 20100401
  Receipt Date: 20100323
  Transmission Date: 20101027
  Serious: Yes (Other)
  Sender: FDA-Public Use
  Company Number: DK-ABBOTT-10P-044-0633966-00

PATIENT
  Sex: Male
  Weight: 80 kg

DRUGS (2)
  1. HUMIRA [Suspect]
     Indication: CROHN'S DISEASE
     Route: 058
     Dates: start: 20091028, end: 20100312
  2. UNSPECIFIED STEROIDS [Concomitant]
     Indication: CROHN'S DISEASE

REACTIONS (3)
  - MULTIPLE SCLEROSIS [None]
  - MUSCULAR WEAKNESS [None]
  - SENSORY DISTURBANCE [None]
